FAERS Safety Report 15297969 (Version 1)
Quarter: 2018Q3

REPORT INFORMATION
  Report Type: Spontaneous
  Country: DE (occurrence: DE)
  Receive Date: 20180820
  Receipt Date: 20180820
  Transmission Date: 20181010
  Serious: Yes (Hospitalization)
  Sender: FDA-Public Use
  Company Number: DE-B. BRAUN MEDICAL INC.-2053964

PATIENT
  Age: 66 Year
  Sex: Male
  Weight: 75 kg

DRUGS (4)
  1. BISOPROLOL [Suspect]
     Active Substance: BISOPROLOL
  2. HEPARIN SODIUM IN DEXTROSE [Suspect]
     Active Substance: HEPARIN SODIUM
  3. ATORVASTATIN [Concomitant]
     Active Substance: ATORVASTATIN
  4. CANDESARTAN. [Concomitant]
     Active Substance: CANDESARTAN

REACTIONS (1)
  - Anaphylactic reaction [Recovering/Resolving]

NARRATIVE: CASE EVENT DATE: 20151027
